FAERS Safety Report 20616767 (Version 1)
Quarter: 2022Q1

REPORT INFORMATION
  Report Type: Spontaneous
  Country: US (occurrence: None)
  Receive Date: 20220321
  Receipt Date: 20220321
  Transmission Date: 20220423
  Serious: Yes (Hospitalization)
  Sender: FDA-Public Use
  Company Number: 2022A113982

PATIENT
  Age: 26771 Day
  Sex: Female
  Weight: 96.6 kg

DRUGS (8)
  1. FASENRA [Suspect]
     Active Substance: BENRALIZUMAB
     Indication: Asthma
     Route: 058
     Dates: start: 20220208
  2. CIMZIA [Concomitant]
     Active Substance: CERTOLIZUMAB PEGOL
     Indication: Rheumatoid arthritis
     Dosage: TWO SHOTS ONCE A MONTH
  3. ISOSORBIDE [Concomitant]
     Active Substance: ISOSORBIDE
  4. CARDIZEM [Concomitant]
     Active Substance: DILTIAZEM HYDROCHLORIDE
     Route: 048
  5. PRAVASTATIN [Concomitant]
     Active Substance: PRAVASTATIN
  6. ADVAIR HFA [Concomitant]
     Active Substance: FLUTICASONE PROPIONATE\SALMETEROL XINAFOATE
     Dosage: TWICE A DAY
     Route: 055
  7. SINGULAIR [Concomitant]
     Active Substance: MONTELUKAST SODIUM
     Dosage: TWO RESPIRATORY INHALATIONS AT HS
     Route: 055
  8. SPRIVA RESPIMAT [Concomitant]
     Dosage: TWO RESPIRATORY INHALATIONS AT HS
     Route: 055

REACTIONS (7)
  - Atrial fibrillation [Unknown]
  - Cough [Unknown]
  - Nerve compression [Not Recovered/Not Resolved]
  - Intervertebral disc protrusion [Not Recovered/Not Resolved]
  - Cardiac disorder [Unknown]
  - Drug ineffective [Unknown]
  - Product dose omission issue [Unknown]

NARRATIVE: CASE EVENT DATE: 20220308
